FAERS Safety Report 17553869 (Version 2)
Quarter: 2020Q3

REPORT INFORMATION
  Report Type: Spontaneous
  Country: US (occurrence: US)
  Receive Date: 20200317
  Receipt Date: 20200717
  Transmission Date: 20201102
  Serious: Yes (Hospitalization, Other)
  Sender: FDA-Public Use
  Company Number: US-ASTRAZENECA-2020SE38276

PATIENT
  Age: 21939 Day
  Sex: Female
  Weight: 80.7 kg

DRUGS (42)
  1. COLLAGEN+BIOTIN [Concomitant]
     Indication: SKIN DISORDER
     Dates: start: 2019
  2. ROLAIDS [Concomitant]
     Active Substance: CALCIUM CARBONATE\MAGNESIUM HYDROXIDE
     Dosage: OTC
     Dates: start: 2015
  3. TRAZODONE [Concomitant]
     Active Substance: TRAZODONE HYDROCHLORIDE
  4. OMEPRAZOLE. [Suspect]
     Active Substance: OMEPRAZOLE
     Indication: GASTROOESOPHAGEAL REFLUX DISEASE
     Dosage: GENERIC
     Route: 065
     Dates: start: 201110, end: 201307
  5. PRILOSEC OTC [Suspect]
     Active Substance: OMEPRAZOLE MAGNESIUM
     Indication: GASTROOESOPHAGEAL REFLUX DISEASE
     Route: 048
     Dates: start: 2013, end: 2016
  6. COLLAGEN+BIOTIN [Concomitant]
     Indication: HAIR DISORDER
     Dates: start: 2019
  7. CHANTIX [Concomitant]
     Active Substance: VARENICLINE TARTRATE
  8. MELOXICAM. [Concomitant]
     Active Substance: MELOXICAM
  9. ONDANSETRON [Concomitant]
     Active Substance: ONDANSETRON
  10. PRILOSEC OTC [Suspect]
     Active Substance: OMEPRAZOLE MAGNESIUM
     Indication: GASTROOESOPHAGEAL REFLUX DISEASE
     Route: 048
     Dates: start: 201808, end: 201905
  11. VITAMIN E [Concomitant]
     Active Substance: .ALPHA.-TOCOPHEROL
     Indication: ANTIOXIDANT THERAPY
     Dates: start: 2019
  12. SULFAMETH [Concomitant]
  13. VITAMIN B12 [Concomitant]
     Active Substance: CYANOCOBALAMIN
  14. LIDOCAINE. [Concomitant]
     Active Substance: LIDOCAINE
  15. OMEPRAZOLE. [Suspect]
     Active Substance: OMEPRAZOLE
     Indication: GASTROOESOPHAGEAL REFLUX DISEASE
     Dosage: GENERIC
     Route: 065
     Dates: start: 200902, end: 200907
  16. DIAZEPAM. [Concomitant]
     Active Substance: DIAZEPAM
     Indication: ANXIETY
     Dates: start: 2016
  17. VALACYCLOVIR [Concomitant]
     Active Substance: VALACYCLOVIR HYDROCHLORIDE
     Indication: VIRAL INFECTION
     Dates: start: 2017
  18. COLLAGEN+BIOTIN [Concomitant]
     Indication: NAIL DISORDER
     Dates: start: 2019
  19. NATURE VALLEY MULTIVITAMIN [Concomitant]
     Indication: ROUTINE HEALTH MAINTENANCE
     Dates: start: 2019
  20. PROCTOFOAM [Concomitant]
     Active Substance: PRAMOXINE HYDROCHLORIDE
  21. GABAPENTIN. [Concomitant]
     Active Substance: GABAPENTIN
  22. ESCITALOPRAM [Concomitant]
     Active Substance: ESCITALOPRAM OXALATE
  23. LOSARTAN. [Concomitant]
     Active Substance: LOSARTAN
  24. PENICILLIN VK [Concomitant]
     Active Substance: PENICILLIN V POTASSIUM
  25. PREMPO [Concomitant]
     Indication: HORMONE REPLACEMENT THERAPY
     Dates: start: 2015
  26. AZITHROMYCIN ANHYDROUS. [Concomitant]
     Active Substance: AZITHROMYCIN ANHYDROUS
  27. PROAIR HFA [Concomitant]
     Active Substance: ALBUTEROL SULFATE
  28. ATORVASTATIN [Concomitant]
     Active Substance: ATORVASTATIN
  29. VICODIN [Concomitant]
     Active Substance: ACETAMINOPHEN\HYDROCODONE BITARTRATE
  30. METRONIDAZOLE. [Concomitant]
     Active Substance: METRONIDAZOLE
  31. NEXIUM [Suspect]
     Active Substance: ESOMEPRAZOLE MAGNESIUM
     Route: 048
     Dates: start: 2013, end: 2016
  32. NEXIUM 24HR [Suspect]
     Active Substance: ESOMEPRAZOLE MAGNESIUM
     Indication: GASTROOESOPHAGEAL REFLUX DISEASE
     Route: 048
     Dates: start: 201808, end: 201905
  33. VITAMIN D [Concomitant]
     Active Substance: VITAMIN D NOS
     Indication: BONE DISORDER
     Dates: start: 2014, end: 2018
  34. TRIAMCINOLONE [Concomitant]
     Active Substance: TRIAMCINOLONE
  35. CIPROFLOXACIN. [Concomitant]
     Active Substance: CIPROFLOXACIN
  36. CLINDAMYCIN. [Concomitant]
     Active Substance: CLINDAMYCIN
  37. BENICAR [Concomitant]
     Active Substance: OLMESARTAN MEDOXOMIL
  38. ZOVIRAX [Concomitant]
     Active Substance: ACYCLOVIR
  39. IBUPROFEN. [Concomitant]
     Active Substance: IBUPROFEN
  40. AMLODIPINE [Concomitant]
     Active Substance: AMLODIPINE BESYLATE
     Indication: HYPERTENSION
     Dates: start: 2017
  41. METHYLPREDNISOLONE. [Concomitant]
     Active Substance: METHYLPREDNISOLONE
  42. HYDROXYPROGESTERONE [Concomitant]
     Active Substance: HYDROXYPROGESTERONE

REACTIONS (1)
  - Chronic kidney disease [Not Recovered/Not Resolved]

NARRATIVE: CASE EVENT DATE: 20180328
